FAERS Safety Report 22165226 (Version 3)
Quarter: 2024Q3

REPORT INFORMATION
  Report Type: Report from Study
  Country: IT (occurrence: IT)
  Receive Date: 20230403
  Receipt Date: 20240927
  Transmission Date: 20241016
  Serious: Yes (Death, Hospitalization)
  Sender: TAKEDA
  Company Number: IT-TAKEDA-2023TUS033844

PATIENT
  Age: 9 Year
  Sex: Male

DRUGS (1)
  1. HUMAN IMMUNOGLOBULIN G\HYALURONIDASE RECOMBINANT HUMAN [Suspect]
     Active Substance: HUMAN IMMUNOGLOBULIN G\HYALURONIDASE (HUMAN RECOMBINANT)
     Indication: Primary immunodeficiency syndrome
     Dosage: 7.5 GRAM, Q4WEEKS
     Route: 058
     Dates: end: 202409

REACTIONS (2)
  - Transplantation complication [Fatal]
  - COVID-19 [Recovered/Resolved]
